FAERS Safety Report 4754966-0 (Version None)
Quarter: 2005Q3

REPORT INFORMATION
  Report Type: 
  Country: None (occurrence: None)
  Receive Date: 20050829
  Receipt Date: 20041025
  Transmission Date: 20060218
  Serious: Yes (Disabling)
  Sender: FDA-Public Use
  Company Number: US-ROCHE-384383

PATIENT
  Age: 15 Year
  Sex: Male
  Weight: 74.8 kg

DRUGS (5)
  1. ACCUTANE [Suspect]
     Route: 065
     Dates: start: 19990809, end: 20000106
  2. ALBUTEROL [Concomitant]
     Indication: ASTHMA
     Route: 055
  3. CLARITIN-D [Concomitant]
  4. BENZO-AC 10% #1 OINTMENT [Concomitant]
     Route: 061
     Dates: start: 19991108
  5. KEFLEX [Concomitant]
     Dates: start: 19991206

REACTIONS (17)
  - ANGER [None]
  - ANXIETY [None]
  - BLOOD TRIGLYCERIDES INCREASED [None]
  - CONSTIPATION [None]
  - CROHN'S DISEASE [None]
  - DEPRESSED MOOD [None]
  - DEPRESSION [None]
  - EPISTAXIS [None]
  - GASTROINTESTINAL DISORDER [None]
  - GASTROOESOPHAGEAL REFLUX DISEASE [None]
  - INFLAMMATORY BOWEL DISEASE [None]
  - INTESTINAL HAEMORRHAGE [None]
  - IRRITABLE BOWEL SYNDROME [None]
  - LIP DRY [None]
  - MOOD SWINGS [None]
  - MULTI-ORGAN DISORDER [None]
  - RECTAL HAEMORRHAGE [None]
